FAERS Safety Report 7900977-3 (Version None)
Quarter: 2011Q4

REPORT INFORMATION
  Report Type: 
  Country: None (occurrence: None)
  Receive Date: 20111104
  Receipt Date: 20111031
  Transmission Date: 20120403
  Serious: Yes (Other)
  Sender: FDA-Public Use
  Company Number: AUR-APL-2011-04806

PATIENT
  Age: 68 Year
  Sex: Female

DRUGS (11)
  1. IRBESARTAN [Concomitant]
  2. ATORVASTATIN [Concomitant]
  3. METFORMIN HCL [Concomitant]
  4. MIRTAZAPINE [Suspect]
     Indication: PANIC ATTACK
     Dosage: (30 MG, EVERY MORNING), ORAL   (15 MG), (30 MG, EVERY MORNING), (15 MG, EVERY MORNING), (30 MG, EVER
     Route: 048
     Dates: start: 20090501, end: 20090801
  5. MIRTAZAPINE [Suspect]
     Indication: PANIC ATTACK
     Dosage: (30 MG, EVERY MORNING), ORAL   (15 MG), (30 MG, EVERY MORNING), (15 MG, EVERY MORNING), (30 MG, EVER
     Route: 048
     Dates: start: 20090401
  6. MIRTAZAPINE [Suspect]
     Indication: PANIC ATTACK
     Dosage: (30 MG, EVERY MORNING), ORAL   (15 MG), (30 MG, EVERY MORNING), (15 MG, EVERY MORNING), (30 MG, EVER
     Route: 048
     Dates: start: 20080701
  7. MIRTAZAPINE [Suspect]
     Indication: PANIC ATTACK
     Dosage: (30 MG, EVERY MORNING), ORAL   (15 MG), (30 MG, EVERY MORNING), (15 MG, EVERY MORNING), (30 MG, EVER
     Route: 048
     Dates: start: 20081101
  8. MIRTAZAPINE [Suspect]
     Indication: PANIC ATTACK
     Dosage: (30 MG, EVERY MORNING), ORAL   (15 MG), (30 MG, EVERY MORNING), (15 MG, EVERY MORNING), (30 MG, EVER
     Route: 048
     Dates: start: 20080601
  9. ALENDRONATE SODIUM [Concomitant]
  10. FOLIC ACID [Concomitant]
  11. SITAGLIPTIN [Concomitant]

REACTIONS (2)
  - TREMOR [None]
  - HYPERTONIA [None]
